FAERS Safety Report 12079452 (Version 2)
Quarter: 2016Q2

REPORT INFORMATION
  Report Type: Spontaneous
  Country: JP (occurrence: JP)
  Receive Date: 20160216
  Receipt Date: 20160421
  Transmission Date: 20160815
  Serious: Yes (Other)
  Sender: FDA-Public Use
  Company Number: JP-SHIONOGI, INC-2016000138

PATIENT
  Age: 60 Year
  Sex: Male

DRUGS (4)
  1. FINIBAX [Suspect]
     Active Substance: DORIPENEM MONOHYDRATE
     Indication: POST PROCEDURAL INFECTION
     Dosage: 1 G, QD
     Route: 041
     Dates: start: 20160201, end: 20160208
  2. VANCOMYCIN [Suspect]
     Active Substance: VANCOMYCIN
     Indication: POST PROCEDURAL INFECTION
     Dosage: 2 G, QD
     Route: 041
     Dates: start: 20160118, end: 20160120
  3. MEROPENEM. [Suspect]
     Active Substance: MEROPENEM
     Indication: POST PROCEDURAL INFECTION
     Dosage: 1.5 G, QD
     Route: 041
     Dates: start: 20160118, end: 20160131
  4. VANCOMYCIN [Suspect]
     Active Substance: VANCOMYCIN
     Dosage: 2.5 G, QD
     Route: 041
     Dates: start: 20160121, end: 20160208

REACTIONS (1)
  - White blood cell count decreased [Recovered/Resolved]

NARRATIVE: CASE EVENT DATE: 20160208
